FAERS Safety Report 11911719 (Version 1)
Quarter: 2016Q1

REPORT INFORMATION
  Report Type: Report from Study
  Country: US (occurrence: US)
  Receive Date: 20160112
  Receipt Date: 20160112
  Transmission Date: 20160526
  Serious: Yes (Hospitalization, Other)
  Sender: FDA-Public Use
  Company Number: US-GILEAD-2015-0190161

PATIENT
  Age: 27 Year
  Sex: Female

DRUGS (15)
  1. ZOFRAN [Concomitant]
     Active Substance: ONDANSETRON HYDROCHLORIDE
  2. ZOLOFT [Concomitant]
     Active Substance: SERTRALINE HYDROCHLORIDE
  3. ADCIRCA [Concomitant]
     Active Substance: TADALAFIL
     Dosage: 40 MG, QD
  4. AMBRISENTAN [Suspect]
     Active Substance: AMBRISENTAN
     Indication: PULMONARY HYPERTENSION
     Dosage: 10 MG, QD
     Route: 065
     Dates: start: 20120221
  5. SPIRONOLACTONE. [Concomitant]
     Active Substance: SPIRONOLACTONE
  6. DEPAKOTE [Concomitant]
     Active Substance: DIVALPROEX SODIUM
  7. LASIX [Concomitant]
     Active Substance: FUROSEMIDE
  8. QUETIAPINE [Concomitant]
     Active Substance: QUETIAPINE
  9. LOVENOX [Concomitant]
     Active Substance: ENOXAPARIN SODIUM
     Route: 058
  10. BISACODYL. [Concomitant]
     Active Substance: BISACODYL
  11. SENNA                              /00142201/ [Concomitant]
     Active Substance: SENNA LEAF
  12. SEROQUEL [Concomitant]
     Active Substance: QUETIAPINE FUMARATE
  13. COUMADIN [Concomitant]
     Active Substance: WARFARIN SODIUM
  14. LABETALOL [Concomitant]
     Active Substance: LABETALOL\LABETALOL HYDROCHLORIDE
  15. OXYGEN. [Concomitant]
     Active Substance: OXYGEN
     Dosage: 3 UNK, UNK

REACTIONS (6)
  - Pneumonia [Unknown]
  - Hypokalaemia [Unknown]
  - Anxiety [Unknown]
  - Skin ulcer [Unknown]
  - Tachycardia [Unknown]
  - Haemoptysis [Unknown]
